FAERS Safety Report 19279643 (Version 2)
Quarter: 2021Q3

REPORT INFORMATION
  Report Type: Report from Study
  Country: GB (occurrence: GB)
  Receive Date: 20210520
  Receipt Date: 20210928
  Transmission Date: 20211014
  Serious: Yes (Other)
  Sender: FDA-Public Use
  Company Number: GB-SAMSUNG BIOEPIS-SB-2021-09787

PATIENT
  Age: 67 Year
  Sex: Female

DRUGS (3)
  1. IMRALDI [Suspect]
     Active Substance: ADALIMUMAB
     Indication: COLITIS ULCERATIVE
     Dosage: WEEK ZERO
     Route: 058
     Dates: start: 20210401
  2. IMRALDI [Suspect]
     Active Substance: ADALIMUMAB
     Dosage: FROM WEEK FOUR (MAINTENANCE)
     Route: 058
  3. IMRALDI [Suspect]
     Active Substance: ADALIMUMAB
     Dosage: WEEK TWO
     Route: 058

REACTIONS (22)
  - Crohn^s disease [Not Recovered/Not Resolved]
  - Neck pain [Unknown]
  - Colitis ulcerative [Recovering/Resolving]
  - Headache [Unknown]
  - Nausea [Recovered/Resolved]
  - Depressed mood [Unknown]
  - Musculoskeletal stiffness [Not Recovered/Not Resolved]
  - Pain [Unknown]
  - Abdominal pain upper [Unknown]
  - Crying [Unknown]
  - Sinusitis [Unknown]
  - Malaise [Unknown]
  - Fatigue [Unknown]
  - Back pain [Recovered/Resolved]
  - Product administered at inappropriate site [Unknown]
  - Balance disorder [Unknown]
  - Insomnia [Unknown]
  - Tremor [Unknown]
  - Irritability [Recovered/Resolved]
  - Injection site pain [Unknown]
  - Muscle twitching [Unknown]
  - Ill-defined disorder [Unknown]
